FAERS Safety Report 11490803 (Version 2)
Quarter: 2017Q1

REPORT INFORMATION
  Report Type: Spontaneous
  Country: US (occurrence: US)
  Receive Date: 20150910
  Receipt Date: 20170125
  Transmission Date: 20170428
  Serious: Yes (Other)
  Sender: FDA-Public Use
  Company Number: US-ELI_LILLY_AND_COMPANY-US201509001445

PATIENT
  Age: 48 Year
  Sex: Female

DRUGS (2)
  1. CYMBALTA [Suspect]
     Active Substance: DULOXETINE HYDROCHLORIDE
     Indication: DEPRESSION
  2. CYMBALTA [Suspect]
     Active Substance: DULOXETINE HYDROCHLORIDE
     Indication: PAIN
     Dosage: 60 MG, UNKNOWN
     Route: 048
     Dates: end: 201502

REACTIONS (13)
  - Sleep disorder [Unknown]
  - Vertigo [Unknown]
  - Dizziness [Unknown]
  - Fatigue [Unknown]
  - Irritability [Unknown]
  - Insomnia [Unknown]
  - Paraesthesia [Unknown]
  - Nightmare [Unknown]
  - Diarrhoea [Unknown]
  - Anxiety [Unknown]
  - Headache [Unknown]
  - Confusional state [Unknown]
  - Drug withdrawal syndrome [Unknown]

NARRATIVE: CASE EVENT DATE: 20150208
